FAERS Safety Report 7515206-2 (Version None)
Quarter: 2011Q2

REPORT INFORMATION
  Report Type: 
  Country: None (occurrence: None)
  Receive Date: 20110601
  Receipt Date: 20110519
  Transmission Date: 20111010
  Serious: Yes (Hospitalization, Other)
  Sender: FDA-Public Use
  Company Number: PHFR2011IE00756

PATIENT
  Sex: Male

DRUGS (8)
  1. BISOPROLOL FUMARATE [Concomitant]
     Indication: BLOOD PRESSURE INCREASED
     Dosage: UNK
     Route: 048
  2. CLONAZEPAM [Concomitant]
     Dosage: 0.5 MG/DAY
     Route: 048
     Dates: start: 20101230, end: 20110103
  3. WARFARIN SODIUM [Concomitant]
     Indication: ATRIAL FLUTTER
     Dosage: UNK
  4. DALMANE [Concomitant]
     Dosage: 15 MG/DAY
     Route: 048
  5. ASPIRIN [Concomitant]
     Indication: CARDIOVASCULAR DISORDER
     Dosage: 75 MG/DAY
     Route: 048
  6. CLOZARIL [Suspect]
     Indication: SCHIZOPHRENIA
     Dosage: 100 MG/DAY
     Route: 048
     Dates: start: 20101220, end: 20110106
  7. LANSOPRAZOLE [Concomitant]
     Indication: GASTRIC ULCER
     Dosage: 30 MG/DAY
     Route: 048
  8. KEMADRIN [Concomitant]
     Indication: EXTRAPYRAMIDAL DISORDER
     Dosage: 5 MG/DAY
     Route: 048

REACTIONS (10)
  - LOWER RESPIRATORY TRACT INFECTION [None]
  - HEADACHE [None]
  - PNEUMONIA [None]
  - WHITE BLOOD CELL COUNT INCREASED [None]
  - UPPER RESPIRATORY TRACT INFECTION [None]
  - SEPSIS [None]
  - TROPONIN INCREASED [None]
  - CARDIAC ENZYMES INCREASED [None]
  - COUGH [None]
  - INFLUENZA LIKE ILLNESS [None]
